FAERS Safety Report 12852965 (Version 2)
Quarter: 2016Q4

REPORT INFORMATION
  Report Type: Spontaneous
  Country: KR (occurrence: KR)
  Receive Date: 20161017
  Receipt Date: 20161215
  Transmission Date: 20170207
  Serious: Yes (Other)
  Sender: FDA-Public Use
  Company Number: KR-009507513-1610KOR003284

PATIENT
  Weight: 60 kg

DRUGS (1)
  1. ESMERON [Suspect]
     Active Substance: ROCURONIUM BROMIDE
     Dosage: 15 MG PER HOUR, CONTINUOUS INFUSION
     Route: 041
     Dates: start: 20161006, end: 20161006

REACTIONS (2)
  - Drug effect incomplete [Unknown]
  - Vascular rupture [Unknown]

NARRATIVE: CASE EVENT DATE: 20161006
